FAERS Safety Report 8055473-2 (Version None)
Quarter: 2012Q1

REPORT INFORMATION
  Report Type: 
  Country: None (occurrence: None)
  Receive Date: 20120119
  Receipt Date: 20120112
  Transmission Date: 20120608
  Serious: Yes (Hospitalization, Other)
  Sender: FDA-Public Use
  Company Number: JP-JNJFOC-20111204943

PATIENT
  Age: 28 Year
  Sex: Male
  Weight: 83 kg

DRUGS (7)
  1. REMICADE [Suspect]
     Indication: CROHN'S DISEASE
     Route: 042
     Dates: start: 20080925
  2. BIO-THREE [Concomitant]
     Indication: CROHN'S DISEASE
     Dosage: DAILY DOSE: 3 TABLETS
     Route: 048
     Dates: start: 20080308, end: 20110817
  3. MUCOSOLVAN [Concomitant]
     Route: 048
     Dates: start: 20110913
  4. PENTASA [Concomitant]
     Indication: CROHN'S DISEASE
     Route: 048
     Dates: start: 20080308, end: 20110817
  5. REMICADE [Suspect]
     Route: 042
     Dates: start: 20110818
  6. CLOPERASTINE FENDIZOATE [Concomitant]
     Route: 048
     Dates: start: 20110913
  7. ACETAMINOPHEN [Concomitant]
     Route: 065
     Dates: start: 20110913

REACTIONS (1)
  - DISSEMINATED TUBERCULOSIS [None]
